FAERS Safety Report 6287812-7 (Version None)
Quarter: 2009Q3

REPORT INFORMATION
  Report Type: 
  Country: None (occurrence: None)
  Receive Date: 20090729
  Receipt Date: 20090720
  Transmission Date: 20100115
  Serious: Yes (Hospitalization)
  Sender: FDA-Public Use
  Company Number: US-BIOGENIDEC-2008BI028793

PATIENT
  Age: 49 Year
  Sex: Female

DRUGS (2)
  1. AVONEX [Suspect]
     Indication: MULTIPLE SCLEROSIS
     Route: 030
     Dates: start: 19990601, end: 20050424
  2. AVONEX [Suspect]
     Route: 030
     Dates: start: 20051124

REACTIONS (4)
  - BENIGN BREAST NEOPLASM [None]
  - BONE DISORDER [None]
  - BREAST CYST [None]
  - SPINAL DISORDER [None]
